FAERS Safety Report 9217426 (Version 2)
Quarter: 2013Q2

REPORT INFORMATION
  Report Type: Spontaneous
  Country: US (occurrence: US)
  Receive Date: 20130408
  Receipt Date: 20130424
  Transmission Date: 20140414
  Serious: Yes (Hospitalization)
  Sender: FDA-Public Use
  Company Number: US-ALEXION PHARMACEUTICALS INC.-A201300675

PATIENT
  Age: 66 Year
  Sex: Male
  Weight: 76.19 kg

DRUGS (8)
  1. SOLIRIS 300MG [Suspect]
     Indication: HAEMOLYTIC URAEMIC SYNDROME
     Dosage: 1200 MG, Q2W
     Route: 042
     Dates: start: 20120530
  2. MAGNESIUM SULFATE [Concomitant]
     Dosage: 2 G, QW
     Route: 042
  3. PRILOSEC [Concomitant]
  4. ENALAPRIL [Concomitant]
  5. INSULIN [Concomitant]
     Dosage: SLIDING SCALE
  6. LANTUS [Concomitant]
  7. METFORMIN [Concomitant]
  8. MULTIVITAMIN [Concomitant]

REACTIONS (4)
  - Retinal detachment [Recovered/Resolved]
  - Haemolytic uraemic syndrome [Recovered/Resolved]
  - Condition aggravated [Recovered/Resolved]
  - Thrombocytopenia [Recovered/Resolved]
